FAERS Safety Report 7664794-4 (Version None)
Quarter: 2011Q3

REPORT INFORMATION
  Report Type: 
  Country: None (occurrence: None)
  Receive Date: 20110806
  Receipt Date: 20110125
  Transmission Date: 20111222
  Serious: No
  Sender: FDA-Public Use
  Company Number: US-ABBOTT-11P-163-0701145-00

PATIENT
  Sex: Female
  Weight: 72.64 kg

DRUGS (4)
  1. NIASPAN [Suspect]
     Indication: BLOOD CHOLESTEROL INCREASED
     Route: 048
     Dates: start: 20110119, end: 20110123
  2. ASPIRIN [Concomitant]
     Indication: PREMEDICATION
     Dosage: 30 MINUTES BEFORE NIASPAN DOSE
     Route: 048
     Dates: start: 20110119, end: 20110119
  3. ASPIRIN [Concomitant]
     Route: 048
     Dates: start: 20110120, end: 20110121
  4. ASPIRIN [Concomitant]
     Route: 048
     Dates: start: 20110122

REACTIONS (1)
  - HOT FLUSH [None]
